FAERS Safety Report 9227119 (Version 1)
Quarter: 2013Q1

REPORT INFORMATION
  Report Type: Spontaneous
  Country: US (occurrence: None)
  Receive Date: 20120927
  Receipt Date: 20120927
  Transmission Date: 20140127
  Serious: Yes (Congenital Anomaly)
  Sender: FDA-Public Use
  Company Number: 2012-00424

PATIENT
  Sex: Male

DRUGS (2)
  1. LAMOTRIGINE (UNKNOWN) [Suspect]
     Indication: CONVULSION
     Dosage: 300MG AT LAST MENSTRUAL PERIOD
  2. VALPROATE [Suspect]
     Indication: CONVULSION
     Dosage: 750MG AT LAST MENSTRUAL PERIOD

REACTIONS (2)
  - Congenital cystic kidney disease [None]
  - Cryptorchism [None]
